FAERS Safety Report 9891670 (Version 1)
Quarter: 2014Q1

REPORT INFORMATION
  Report Type: Spontaneous
  Country: US (occurrence: None)
  Receive Date: 20140210
  Receipt Date: 20140210
  Transmission Date: 20141002
  Serious: Yes (Death)
  Sender: FDA-Public Use
  Company Number: 2014010138

PATIENT
  Age: 56 Year
  Sex: Female

DRUGS (10)
  1. ZOLPIDEM [Suspect]
  2. FENTANYL (FENTANYL) [Suspect]
  3. ACETAMINOPHEN/HYDROCODONE (ACETAMINOPHEN, HYDROCODONE) [Suspect]
  4. OXYCODONE (OXYCODONE) [Suspect]
  5. PENTAZOCINE [Suspect]
  6. BUTALBITAL [Suspect]
  7. AMITRIPTYLINE (AMITRIPTYLINE) [Suspect]
  8. DEXTROMETHORPHAN (DEXTROMETHORPHAN) [Suspect]
  9. PROPOXYPHENE [Suspect]
  10. DIPHENHYDRAMINE (DIPHENHYDRAMINE) [Suspect]

REACTIONS (2)
  - Exposure via ingestion [None]
  - Drug abuse [None]
